FAERS Safety Report 25469037 (Version 1)
Quarter: 2025Q2

REPORT INFORMATION
  Report Type: Spontaneous
  Country: CA (occurrence: CA)
  Receive Date: 20250623
  Receipt Date: 20250623
  Transmission Date: 20250717
  Serious: Yes (Other)
  Sender: SANOFI AVENTIS
  Company Number: CA-SA-2025SA176354

PATIENT
  Age: 70 Year
  Sex: Male
  Weight: 170 kg

DRUGS (11)
  1. INSULIN ASPART [Suspect]
     Active Substance: INSULIN ASPART
     Indication: Diabetes mellitus
     Dosage: 28 U, TID
     Route: 058
  2. TELMISARTAN [Concomitant]
     Active Substance: TELMISARTAN
  3. AMLODIPINE [Concomitant]
     Active Substance: AMLODIPINE BESYLATE
  4. METOPROLOL [Concomitant]
     Active Substance: METOPROLOL
  5. ROSUVASTATIN [Concomitant]
     Active Substance: ROSUVASTATIN
  6. CHLORTHALIDONE [Concomitant]
     Active Substance: CHLORTHALIDONE
  7. LEVEMIR [Concomitant]
     Active Substance: INSULIN DETEMIR
     Route: 058
  8. METFORMIN [Concomitant]
     Active Substance: METFORMIN HYDROCHLORIDE
  9. FUROSEMIDE [Concomitant]
     Active Substance: FUROSEMIDE
  10. OZEMPIC [Concomitant]
     Active Substance: SEMAGLUTIDE
  11. PREVACID [Concomitant]
     Active Substance: LANSOPRAZOLE

REACTIONS (7)
  - Blister [Recovered/Resolved]
  - Joint swelling [Recovered/Resolved]
  - Fluid retention [Recovered/Resolved]
  - Peripheral swelling [Recovered/Resolved]
  - Weight increased [Recovered/Resolved]
  - Glycosylated haemoglobin increased [Recovered/Resolved]
  - Product substitution issue [Unknown]
